FAERS Safety Report 5079988-4 (Version None)
Quarter: 2006Q3

REPORT INFORMATION
  Report Type: 
  Country: None (occurrence: None)
  Receive Date: 20060810
  Receipt Date: 20060728
  Transmission Date: 20061208
  Serious: Yes (Hospitalization, Other)
  Sender: FDA-Public Use
  Company Number: 2006095388

PATIENT
  Age: 52 Year
  Sex: Male

DRUGS (1)
  1. BEXTRA [Suspect]
     Indication: PAIN
     Dosage: 10 MG (10 MG, 1 IN 1 D)
     Dates: start: 20031029

REACTIONS (4)
  - BACTERAEMIA [None]
  - CELLULITIS [None]
  - PSEUDOMONAS INFECTION [None]
  - STEVENS-JOHNSON SYNDROME [None]
